FAERS Safety Report 5141186-3 (Version None)
Quarter: 2006Q4

REPORT INFORMATION
  Report Type: 
  Country: None (occurrence: None)
  Receive Date: 20061026
  Receipt Date: 20061011
  Transmission Date: 20070319
  Serious: Yes (Death)
  Sender: FDA-Public Use
  Company Number: S06-FRA-02605-01

PATIENT
  Age: 53 Year
  Sex: Male

DRUGS (4)
  1. SEROPLEX (ESCITALOPRAM) [Suspect]
     Dosage: 20 TABLET ONCE PO
     Route: 048
     Dates: start: 20060504, end: 20060504
  2. SEROPLEX (ESCITALOPRAM) [Suspect]
     Dosage: 1 TABLET QD PO
     Route: 048
     Dates: start: 20060504, end: 20060504
  3. OXAZEPAM [Suspect]
     Dosage: 60 TABLET ONCE PO
     Route: 048
     Dates: start: 20060504, end: 20060504
  4. OXAZEPAM [Suspect]
     Dates: start: 20060504, end: 20060504

REACTIONS (11)
  - ACUTE RESPIRATORY DISTRESS SYNDROME [None]
  - DELIRIUM [None]
  - HEPATIC FAILURE [None]
  - HEPATIC STEATOSIS [None]
  - INTENTIONAL OVERDOSE [None]
  - JAUNDICE CHOLESTATIC [None]
  - LUNG DISORDER [None]
  - RENAL FAILURE ACUTE [None]
  - SEPTIC SHOCK [None]
  - SOMNOLENCE [None]
  - THROMBOCYTOPENIA [None]
